FAERS Safety Report 4614029-1 (Version None)
Quarter: 2005Q1

REPORT INFORMATION
  Report Type: 
  Country: None (occurrence: None)
  Receive Date: 20050316
  Receipt Date: 20050225
  Transmission Date: 20050727
  Serious: Yes (Other)
  Sender: FDA-Public Use
  Company Number: JP_050105691

PATIENT
  Age: 51 Year
  Sex: Female
  Weight: 50 kg

DRUGS (4)
  1. ZYPREXA [Suspect]
     Indication: SCHIZOPHRENIA
     Dosage: 20 MG DAY
     Dates: end: 20050214
  2. DEPAS (ETIZOLAM) [Concomitant]
  3. GASMOTIN (MOSAPRIDE CITRATE) [Concomitant]
  4. MAGMITT (MAGNESIUM OXIDE) [Concomitant]

REACTIONS (2)
  - BLOOD PRESSURE DECREASED [None]
  - VENTRICULAR EXTRASYSTOLES [None]
